FAERS Safety Report 17042116 (Version 1)
Quarter: 2019Q4

REPORT INFORMATION
  Report Type: Report from Study
  Country: FR (occurrence: FR)
  Receive Date: 20191118
  Receipt Date: 20191118
  Transmission Date: 20200122
  Serious: Yes (Other)
  Sender: FDA-Public Use
  Company Number: FR-BEH-2019106782

PATIENT
  Age: 19 Month
  Sex: Female

DRUGS (7)
  1. FIBROGAMMIN P [Suspect]
     Active Substance: FACTOR XIII CONCENTRATE (HUMAN)
     Indication: FACTOR XIII DEFICIENCY
     Dosage: 25 INTERNATIONAL UNIT/KILOGRAM, QW
     Route: 065
  2. FIBROGAMMIN P [Suspect]
     Active Substance: FACTOR XIII CONCENTRATE (HUMAN)
     Dosage: 28 UNK
     Route: 065
  3. FIBROGAMMIN P [Suspect]
     Active Substance: FACTOR XIII CONCENTRATE (HUMAN)
     Dosage: 25 IU/KG EVERY 5 WEEKS
     Route: 065
  4. FIBROGAMMIN P [Suspect]
     Active Substance: FACTOR XIII CONCENTRATE (HUMAN)
     Dosage: 25 UNK
     Route: 065
  5. FIBROGAMMIN P [Suspect]
     Active Substance: FACTOR XIII CONCENTRATE (HUMAN)
     Indication: IMMUNE TOLERANCE INDUCTION
     Dosage: 25 INTERNATIONAL UNIT/KILOGRAM,EVERY 4 WEEKS
     Route: 065
  6. FIBROGAMMIN P [Suspect]
     Active Substance: FACTOR XIII CONCENTRATE (HUMAN)
     Dosage: 50 INTERNATIONAL UNIT/KILOGRAM, BIW
     Route: 065
  7. FIBROGAMMIN P [Suspect]
     Active Substance: FACTOR XIII CONCENTRATE (HUMAN)
     Dosage: 42 UNK
     Route: 065

REACTIONS (3)
  - Drug ineffective for unapproved indication [Unknown]
  - Factor XIII Inhibition [Recovered/Resolved]
  - Product use in unapproved indication [Unknown]
